FAERS Safety Report 5593030-8 (Version None)
Quarter: 2008Q1

REPORT INFORMATION
  Report Type: 
  Country: None (occurrence: None)
  Receive Date: 20080116
  Receipt Date: 20080103
  Transmission Date: 20080703
  Serious: Yes (Other)
  Sender: FDA-Public Use
  Company Number: US-BAYER-200810054BCC

PATIENT
  Sex: Female

DRUGS (3)
  1. ALEVE [Suspect]
     Indication: ARTHRALGIA
  2. CORTISONE ACETATE TAB [Concomitant]
     Dates: start: 20070401
  3. PREDNISONE TAB [Concomitant]
     Dates: start: 20070401

REACTIONS (1)
  - GASTROENTERITIS EOSINOPHILIC [None]
